FAERS Safety Report 7410166-7 (Version None)
Quarter: 2011Q2

REPORT INFORMATION
  Report Type: 
  Country: None (occurrence: None)
  Receive Date: 20110412
  Receipt Date: 20110404
  Transmission Date: 20111010
  Serious: Yes (Death, Life-Threatening, Other)
  Sender: FDA-Public Use
  Company Number: US-GENZYME-CLOF-1001125

PATIENT
  Sex: Male
  Weight: 101.3 kg

DRUGS (9)
  1. SIROLIMUS [Concomitant]
     Dosage: 2 MG, QD
     Route: 048
     Dates: start: 20100808, end: 20100809
  2. THIOTEPA [Suspect]
     Indication: ACUTE MYELOID LEUKAEMIA
     Dosage: 10 MG/KG, UNK
     Route: 065
     Dates: start: 20100717, end: 20100717
  3. SIROLIMUS [Concomitant]
     Dosage: 3 MG, QD
     Route: 048
     Dates: start: 20100723, end: 20100804
  4. TACROLIMUS [Concomitant]
     Indication: PROPHYLAXIS AGAINST GRAFT VERSUS HOST DISEASE
     Dosage: UNK UNK, UNK
     Route: 065
  5. TACROLIMUS [Concomitant]
     Dosage: 7 MG, QD CONTINOUS INFUSION
     Route: 041
     Dates: start: 20100812, end: 20100829
  6. MELPHALAN [Suspect]
     Indication: ACUTE MYELOID LEUKAEMIA
     Dosage: 70 MG/M2, UNK
     Route: 065
     Dates: start: 20100718, end: 20100719
  7. MYCOPHENOLATE MOFETIL [Concomitant]
     Indication: PROPHYLAXIS AGAINST GRAFT VERSUS HOST DISEASE
     Dosage: UNK UNK, UNK
     Route: 065
  8. CLOFARABINE [Suspect]
     Indication: ACUTE MYELOID LEUKAEMIA
     Dosage: 30 MG/M2, QDX5;
     Route: 042
     Dates: start: 20100712, end: 20100716
  9. SIROLIMUS [Concomitant]
     Indication: PROPHYLAXIS AGAINST GRAFT VERSUS HOST DISEASE
     Dosage: 3 MG, QD
     Route: 048
     Dates: start: 20100723, end: 20100804

REACTIONS (6)
  - TRANSPLANT FAILURE [None]
  - ENTEROCOCCAL SEPSIS [None]
  - RENAL FAILURE [None]
  - ACUTE RESPIRATORY FAILURE [None]
  - MUCOSAL INFLAMMATION [None]
  - MULTI-ORGAN FAILURE [None]
